FAERS Safety Report 9450124 (Version 1)
Quarter: 2013Q3

REPORT INFORMATION
  Report Type: Spontaneous
  Country: US (occurrence: US)
  Receive Date: 20130809
  Receipt Date: 20130809
  Transmission Date: 20140515
  Serious: Yes (Other)
  Sender: FDA-Public Use
  Company Number: US-PFIZER INC-2013228392

PATIENT
  Age: 68 Year
  Sex: Female
  Weight: 68.03 kg

DRUGS (1)
  1. PREMARIN [Suspect]
     Indication: URINARY TRACT INFECTION
     Dosage: UNK
     Route: 067

REACTIONS (2)
  - Macular degeneration [Unknown]
  - Eye inflammation [Unknown]
